FAERS Safety Report 11066748 (Version 2)
Quarter: 2015Q2

REPORT INFORMATION
  Report Type: Spontaneous
  Country: US (occurrence: US)
  Receive Date: 20150425
  Receipt Date: 20150525
  Transmission Date: 20150821
  Serious: No
  Sender: FDA-Public Use
  Company Number: US-JNJFOC-20150302966

PATIENT
  Sex: Female
  Weight: 49.9 kg

DRUGS (2)
  1. REMICADE [Suspect]
     Active Substance: INFLIXIMAB
     Indication: COLITIS ULCERATIVE
     Route: 042
     Dates: end: 2013
  2. ASACOL [Concomitant]
     Active Substance: MESALAMINE
     Indication: COLITIS ULCERATIVE
     Dosage: 2 TABLETS THREE TIMES A DAY
     Route: 048

REACTIONS (4)
  - Drug specific antibody present [Unknown]
  - Fatigue [Unknown]
  - Colitis ulcerative [Unknown]
  - Drug ineffective [Unknown]
